FAERS Safety Report 8202613-8 (Version None)
Quarter: 2012Q1

REPORT INFORMATION
  Report Type: 
  Country: None (occurrence: None)
  Receive Date: 20120312
  Receipt Date: 20120301
  Transmission Date: 20120608
  Serious: Yes (Other)
  Sender: FDA-Public Use
  Company Number: CA-ASTRAZENECA-2012SE14430

PATIENT
  Age: 52 Year
  Sex: Male

DRUGS (1)
  1. CRESTOR [Suspect]
     Indication: C-REACTIVE PROTEIN ABNORMAL
     Route: 048
     Dates: start: 20110101

REACTIONS (2)
  - RETINAL TEAR [None]
  - MUSCLE SPASMS [None]
